FAERS Safety Report 4340375-5 (Version None)
Quarter: 2004Q2

REPORT INFORMATION
  Report Type: 
  Country: None (occurrence: None)
  Receive Date: 20040409
  Receipt Date: 19960112
  Transmission Date: 20050107
  Serious: Yes (Hospitalization)
  Sender: FDA-Public Use
  Company Number: WS1684-WS1692

PATIENT
  Age: 7 Year
  Sex: Male
  Weight: 47.1741 kg

DRUGS (2)
  1. WINRHO SD [Suspect]
     Indication: IDIOPATHIC THROMBOCYTOPENIC PURPURA
     Dosage: 50 (UG/KG), IV ONE DOSE
     Dates: start: 19951228
  2. IVIG FOR KAWASKI DISEASE [Concomitant]

REACTIONS (2)
  - DISSEMINATED INTRAVASCULAR COAGULATION [None]
  - INTRAVASCULAR HAEMOLYSIS [None]
